FAERS Safety Report 16156467 (Version 1)
Quarter: 2019Q2

REPORT INFORMATION
  Report Type: Spontaneous
  Country: DE (occurrence: DE)
  Receive Date: 20190404
  Receipt Date: 20190404
  Transmission Date: 20190711
  Serious: Yes (Other)
  Sender: FDA-Public Use
  Company Number: DE-TEVA-2019-DE-1032345

PATIENT
  Age: 36 Year
  Sex: Female
  Weight: 94 kg

DRUGS (2)
  1. CARBAMAZEPINE. [Suspect]
     Active Substance: CARBAMAZEPINE
     Route: 048
     Dates: start: 20040220
  2. CARBAMAZEPINE. [Suspect]
     Active Substance: CARBAMAZEPINE
     Indication: TRIGEMINAL NEURALGIA
     Dosage: 400 MILLIGRAM DAILY; 200 MG, BID
     Route: 048
     Dates: end: 20040311

REACTIONS (9)
  - Myocarditis [Unknown]
  - Cardiomegaly [Not Recovered/Not Resolved]
  - Infection [Not Recovered/Not Resolved]
  - Pyrexia [Not Recovered/Not Resolved]
  - Heart rate increased [Unknown]
  - Sinus tachycardia [Not Recovered/Not Resolved]
  - Pneumonia [Not Recovered/Not Resolved]
  - Palpitations [Not Recovered/Not Resolved]
  - Cardiomyopathy [Not Recovered/Not Resolved]

NARRATIVE: CASE EVENT DATE: 20040308
